FAERS Safety Report 6612052-9 (Version None)
Quarter: 2010Q1

REPORT INFORMATION
  Report Type: 
  Country: None (occurrence: None)
  Receive Date: 20100303
  Receipt Date: 20100223
  Transmission Date: 20100710
  Serious: Yes (Hospitalization, Other)
  Sender: FDA-Public Use
  Company Number: B0626349A

PATIENT
  Sex: Male

DRUGS (14)
  1. ZOVIRAX [Suspect]
     Indication: HERPES ZOSTER
     Dosage: 400MG TWICE PER DAY
     Route: 048
     Dates: start: 20100106, end: 20100106
  2. ZOVIRAX [Suspect]
     Dosage: 250MG PER DAY
     Route: 042
     Dates: start: 20100112, end: 20100117
  3. MEROPENEM [Suspect]
     Indication: DRUG USE FOR UNKNOWN INDICATION
     Dosage: .5G PER DAY
     Route: 065
     Dates: start: 20100112, end: 20100119
  4. SOLU-MEDROL [Concomitant]
     Dosage: 1000MG PER DAY
     Route: 065
     Dates: start: 20100112, end: 20100114
  5. PLETAL [Concomitant]
     Dosage: 200MG PER DAY
     Route: 048
  6. ASPIRIN [Concomitant]
     Dosage: 100MG PER DAY
     Route: 048
  7. TANKARU [Concomitant]
     Dosage: 3000MG PER DAY
     Route: 048
  8. RENAGEL [Concomitant]
     Dosage: 750MG PER DAY
     Route: 048
  9. PARIET [Concomitant]
     Dosage: 10MG PER DAY
     Route: 048
  10. UNKNOWN [Concomitant]
     Dosage: .25MCG PER DAY
     Route: 048
  11. LAXOBERON [Concomitant]
     Route: 048
  12. SOLANAX [Concomitant]
     Indication: DIALYSIS
     Dosage: .4MG PER DAY
     Route: 048
  13. RISUMIC [Concomitant]
     Indication: DIALYSIS
     Dosage: 10MG PER DAY
     Route: 048
  14. UNKNOWN DRUG [Concomitant]
     Indication: DIALYSIS
     Dates: start: 20100113, end: 20100122

REACTIONS (4)
  - ALTERED STATE OF CONSCIOUSNESS [None]
  - ENCEPHALOPATHY [None]
  - PYREXIA [None]
  - SOMNOLENCE [None]
